FAERS Safety Report 6348433-0 (Version None)
Quarter: 2009Q3

REPORT INFORMATION
  Report Type: 
  Country: None (occurrence: None)
  Receive Date: 20090911
  Receipt Date: 20090903
  Transmission Date: 20100115
  Serious: Yes (Hospitalization)
  Sender: FDA-Public Use
  Company Number: US-BIOGENIDEC-2009BI012126

PATIENT
  Age: 49 Year
  Sex: Female

DRUGS (2)
  1. AVONEX [Suspect]
     Indication: MULTIPLE SCLEROSIS
     Route: 030
     Dates: start: 20040223, end: 20080216
  2. AVONEX [Suspect]
     Route: 030
     Dates: start: 20090227

REACTIONS (3)
  - COMA [None]
  - PNEUMONIA [None]
  - RESPIRATORY DISTRESS [None]
